FAERS Safety Report 13461757 (Version 2)
Quarter: 2017Q2

REPORT INFORMATION
  Report Type: Spontaneous
  Country: JP (occurrence: JP)
  Receive Date: 20170420
  Receipt Date: 20170606
  Transmission Date: 20170830
  Serious: Yes (Hospitalization, Other)
  Sender: FDA-Public Use
  Company Number: JP-GLAXOSMITHKLINE-JP2017JPN055302

PATIENT
  Age: 74 Year
  Sex: Female

DRUGS (1)
  1. REQUIP [Suspect]
     Active Substance: ROPINIROLE HYDROCHLORIDE
     Route: 048

REACTIONS (3)
  - Product use complaint [Unknown]
  - Wrong technique in product usage process [Unknown]
  - Femur fracture [Unknown]
